FAERS Safety Report 12167037 (Version 1)
Quarter: 2016Q1

REPORT INFORMATION
  Report Type: Spontaneous
  Country: US (occurrence: None)
  Receive Date: 20160309
  Receipt Date: 20160309
  Transmission Date: 20160526
  Serious: No
  Sender: FDA-Public Use
  Company Number: None

PATIENT
  Age: 63 Year
  Sex: Male

DRUGS (1)
  1. MYCOPHENOLAT [Suspect]
     Active Substance: MYCOPHENOLATE MOFETIL
     Indication: MYASTHENIA GRAVIS
     Route: 048

REACTIONS (5)
  - Skin atrophy [None]
  - Fat tissue increased [None]
  - Alopecia [None]
  - Glucose tolerance impaired [None]
  - Cushing^s syndrome [None]

NARRATIVE: CASE EVENT DATE: 20160308
